FAERS Safety Report 10176247 (Version 1)
Quarter: 2014Q2

REPORT INFORMATION
  Report Type: Spontaneous
  Country: US (occurrence: None)
  Receive Date: 20140515
  Receipt Date: 20140515
  Transmission Date: 20141212
  Serious: No
  Sender: FDA-Public Use
  Company Number: None

PATIENT
  Age: 81 Year
  Sex: Female

DRUGS (3)
  1. CIPROFLOXACIN [Suspect]
     Indication: EYE INFECTION
     Dosage: 1 DROP 4 TIMES DAILY
     Dates: start: 20140425, end: 20140428
  2. PREDNISOLONE [Suspect]
     Indication: EYE INFECTION
     Dosage: 1 DROP 20 MINS LATE
  3. TYLENOL [Concomitant]

REACTIONS (5)
  - Eye infection [None]
  - Headache [None]
  - Nausea [None]
  - Fatigue [None]
  - Cardiac disorder [None]
